FAERS Safety Report 11746861 (Version 1)
Quarter: 2015Q4

REPORT INFORMATION
  Report Type: Spontaneous
  Country: US (occurrence: None)
  Receive Date: 20151116
  Receipt Date: 20151116
  Transmission Date: 20160304
  Serious: No
  Sender: FDA-Public Use
  Company Number: None

PATIENT
  Age: 68 Year
  Sex: Male

DRUGS (1)
  1. CAPECITABINE 500MG TEVA PHARMACEUTICALS USA INC [Suspect]
     Active Substance: CAPECITABINE
     Indication: COLON CANCER
     Dosage: 2500MG TWICE A DAY 7 DAYS ON AND 7
     Dates: start: 20151021

REACTIONS (2)
  - Nausea [None]
  - Cough [None]

NARRATIVE: CASE EVENT DATE: 20151112
